FAERS Safety Report 7785954-8 (Version None)
Quarter: 2011Q3

REPORT INFORMATION
  Report Type: 
  Country: None (occurrence: None)
  Receive Date: 20110929
  Receipt Date: 20110922
  Transmission Date: 20111222
  Serious: Yes (Other)
  Sender: FDA-Public Use
  Company Number: GB-PFIZER INC-2011226680

PATIENT
  Age: 19 Year
  Sex: Male

DRUGS (4)
  1. ISONIAZID [Suspect]
     Indication: PULMONARY TUBERCULOSIS
  2. RIFAMPIN [Suspect]
     Indication: BONE TUBERCULOSIS
  3. RIFAMPIN [Suspect]
     Indication: PULMONARY TUBERCULOSIS
  4. ISONIAZID [Suspect]
     Indication: BONE TUBERCULOSIS

REACTIONS (2)
  - TRANSPLANT FAILURE [None]
  - ACUTE HEPATIC FAILURE [None]
